FAERS Safety Report 8985862 (Version 2)
Quarter: 2013Q1

REPORT INFORMATION
  Report Type: Report from Study
  Country: DE (occurrence: DE)
  Receive Date: 20121226
  Receipt Date: 20130220
  Transmission Date: 20140127
  Serious: Yes (Other)
  Sender: FDA-Public Use
  Company Number: DE-CELGENEUS-062-21660-12114068

PATIENT
  Age: 74 Year
  Sex: Female

DRUGS (2)
  1. ABRAXANE [Suspect]
     Indication: BREAST CANCER METASTATIC
     Dosage: FROM 90MG/M2 TO 150MG/M2
     Route: 011
     Dates: start: 20120424, end: 20120910
  2. DENOSUMAB [Concomitant]
     Indication: BREAST CANCER
     Route: 065

REACTIONS (5)
  - Metastases to bone [Unknown]
  - Atrioventricular block [Not Recovered/Not Resolved]
  - Arthralgia [Unknown]
  - Neutropenia [Unknown]
  - Polyneuropathy [Recovered/Resolved]
